FAERS Safety Report 22347410 (Version 1)
Quarter: 2023Q2

REPORT INFORMATION
  Report Type: Spontaneous
  Country: RU (occurrence: RU)
  Receive Date: 20230521
  Receipt Date: 20230521
  Transmission Date: 20230721
  Serious: Yes (Other)
  Sender: FDA-Public Use
  Company Number: RU-009507513-2305RUS004835

PATIENT
  Sex: Female
  Weight: 78 kg

DRUGS (3)
  1. ISENTRESS [Suspect]
     Active Substance: RALTEGRAVIR POTASSIUM
     Indication: HIV infection
     Dosage: 400 MILLIGRAM
     Dates: start: 20220208, end: 20221228
  2. TIVICAY [Suspect]
     Active Substance: DOLUTEGRAVIR SODIUM
     Indication: HIV infection
     Dosage: 50 MILLIGRAM
     Dates: start: 20210309, end: 20220207
  3. EFAVIRENZ [Suspect]
     Active Substance: EFAVIRENZ
     Indication: HIV infection
     Dosage: 600 MILLIGRAM
     Dates: start: 20200115, end: 20210317

REACTIONS (4)
  - Rash [Recovered/Resolved]
  - Headache [Recovered/Resolved]
  - Pruritus [Recovered/Resolved]
  - Diarrhoea [Recovered/Resolved]

NARRATIVE: CASE EVENT DATE: 20210124
